FAERS Safety Report 5278630-7 (Version None)
Quarter: 2007Q1

REPORT INFORMATION
  Report Type: 
  Country: None (occurrence: None)
  Receive Date: 20061213
  Receipt Date: 20050505
  Transmission Date: 20070707
  Serious: Yes (Hospitalization)
  Sender: FDA-Public Use
  Company Number: 2005UW07040

PATIENT
  Age: 75 Year
  Sex: Female

DRUGS (3)
  1. SEROQUEL [Suspect]
  2. NAMENDA [Concomitant]
  3. LEXAPRO [Concomitant]

REACTIONS (1)
  - TREMOR [None]
